FAERS Safety Report 12110506 (Version 2)
Quarter: 2016Q1

REPORT INFORMATION
  Report Type: Spontaneous
  Country: TR (occurrence: TR)
  Receive Date: 20160224
  Receipt Date: 20160309
  Transmission Date: 20160526
  Serious: Yes (Other)
  Sender: FDA-Public Use
  Company Number: TR-PFIZER INC-2016113487

PATIENT
  Age: 45 Year
  Sex: Female

DRUGS (2)
  1. MUSKAZON [Concomitant]
  2. LYRICA [Suspect]
     Active Substance: PREGABALIN
     Indication: BACK PAIN
     Dosage: 75 MG, UNK

REACTIONS (2)
  - Respiratory depression [Recovered/Resolved]
  - Drug ineffective [Unknown]
